FAERS Safety Report 14271907 (Version 1)
Quarter: 2017Q4

REPORT INFORMATION
  Report Type: Spontaneous
  Country: US (occurrence: US)
  Receive Date: 20171211
  Receipt Date: 20171211
  Transmission Date: 20180321
  Serious: Yes (Other)
  Sender: FDA-Public Use
  Company Number: US-OTSUKA-2016_010349

PATIENT
  Age: 75 Year
  Sex: Female

DRUGS (2)
  1. ABILIFY [Suspect]
     Active Substance: ARIPIPRAZOLE
     Indication: SCHIZOPHRENIA
     Dosage: 30 MG, QD; DOSE WAS INCREASED FROM 10 MG
     Route: 048
     Dates: start: 201603
  2. ABILIFY [Suspect]
     Active Substance: ARIPIPRAZOLE
     Indication: PERSONALITY DISORDER

REACTIONS (3)
  - Confusional state [Not Recovered/Not Resolved]
  - Neoplasm malignant [Unknown]
  - Anxiety [Not Recovered/Not Resolved]
